FAERS Safety Report 5446124-1 (Version None)
Quarter: 2007Q3

REPORT INFORMATION
  Report Type: 
  Country: None (occurrence: None)
  Receive Date: 20070904
  Receipt Date: 20070817
  Transmission Date: 20080115
  Serious: Yes (Other)
  Sender: FDA-Public Use
  Company Number: FR-1163887

PATIENT
  Sex: Female

DRUGS (2)
  1. TOBREX [Suspect]
     Dosage: EYE DROPS; OPHTHALMIC SOLUTION
     Route: 047
  2. TOBRADEX [Suspect]
     Dosage: EYE DROPS, SUSPENSION

REACTIONS (6)
  - CONDITION AGGRAVATED [None]
  - CONFUSIONAL STATE [None]
  - DRUG INEFFECTIVE [None]
  - KERATITIS [None]
  - MEDICATION ERROR [None]
  - WRONG DRUG ADMINISTERED [None]
